FAERS Safety Report 4364818-6 (Version None)
Quarter: 2004Q2

REPORT INFORMATION
  Report Type: 
  Country: None (occurrence: None)
  Receive Date: 20040526
  Receipt Date: 20040308
  Transmission Date: 20050107
  Serious: No
  Sender: FDA-Public Use
  Company Number: US-GLAXOSMITHKLINE-A0503150A

PATIENT
  Age: 33 Year
  Sex: Female

DRUGS (9)
  1. LOTRONEX [Suspect]
     Indication: IRRITABLE BOWEL SYNDROME
     Dosage: 1MG TWICE PER DAY
     Route: 048
     Dates: start: 20000527
  2. FIBERCON [Concomitant]
  3. COLACE [Concomitant]
  4. SENOKOT [Concomitant]
  5. DETROL [Concomitant]
  6. LEVSIN PB [Concomitant]
  7. AXID [Concomitant]
  8. GAVISCON [Concomitant]
  9. PHAZYME [Concomitant]

REACTIONS (3)
  - ABDOMINAL PAIN [None]
  - CONSTIPATION [None]
  - GASTROINTESTINAL PAIN [None]
